FAERS Safety Report 20290883 (Version 1)
Quarter: 2022Q1

REPORT INFORMATION
  Report Type: Spontaneous
  Country: US (occurrence: US)
  Receive Date: 20220104
  Receipt Date: 20220104
  Transmission Date: 20220423
  Serious: No
  Sender: FDA-Public Use
  Company Number: US-PFIZER INC-202101877187

PATIENT
  Age: 51 Year
  Sex: Male

DRUGS (3)
  1. PRISTIQ EXTENDED-RELEASE [Suspect]
     Active Substance: DESVENLAFAXINE SUCCINATE
     Dosage: 50 MG
  2. PRISTIQ EXTENDED-RELEASE [Suspect]
     Active Substance: DESVENLAFAXINE SUCCINATE
     Dosage: 25 MG
  3. LISINOPRIL [Concomitant]
     Active Substance: LISINOPRIL
     Dosage: UNK

REACTIONS (10)
  - Agitation [Unknown]
  - Crying [Unknown]
  - Asthenia [Unknown]
  - Head discomfort [Unknown]
  - Feeling abnormal [Unknown]
  - Nausea [Unknown]
  - Hyperhidrosis [Unknown]
  - Vision blurred [Unknown]
  - Malaise [Unknown]
  - Withdrawal syndrome [Unknown]
